FAERS Safety Report 5385625-1 (Version None)
Quarter: 2007Q3

REPORT INFORMATION
  Report Type: 
  Country: None (occurrence: None)
  Receive Date: 20070712
  Receipt Date: 20070706
  Transmission Date: 20080115
  Serious: Yes (Other)
  Sender: FDA-Public Use
  Company Number: CHWYE982406JUL07

PATIENT
  Age: 43 Year
  Sex: Male

DRUGS (4)
  1. EFFEXOR [Suspect]
     Indication: DEPRESSION
     Route: 048
     Dates: start: 20070306, end: 20070326
  2. EFFEXOR [Suspect]
     Route: 048
     Dates: start: 20070327
  3. SERESTA [Concomitant]
     Dosage: 15 MG PER DAY IN RESERVE
  4. ANTABUSE [Concomitant]
     Indication: ALCOHOLISM
     Route: 048
     Dates: start: 20051112

REACTIONS (5)
  - AKATHISIA [None]
  - IRRITABILITY [None]
  - SLEEP DISORDER [None]
  - SOMNAMBULISM [None]
  - TENSION [None]
